FAERS Safety Report 8598138-0 (Version None)
Quarter: 2012Q3

REPORT INFORMATION
  Report Type: 
  Country: None (occurrence: None)
  Receive Date: 20120806
  Receipt Date: 20120720
  Transmission Date: 20120928
  Serious: Yes (Disabling)
  Sender: FDA-Public Use
  Company Number: USA/USA/12/0024640

PATIENT
  Age: 66 Year
  Sex: Female
  Weight: 90.7194 kg

DRUGS (6)
  1. CIPROFLOXACIN [Suspect]
     Indication: URINARY TRACT INFECTION
     Dosage: 250 MG - 500 MG BY MOUTH TWICE DAILY X 5-10 DAYS) TO TREAT THE INFECTIONS (ON AVERAGE TWICE PER YEAR
     Dates: start: 20120101, end: 20120101
  2. CIPROFLOXACIN [Suspect]
     Indication: URINARY TRACT INFECTION
     Dosage: 250 MG - 500 MG BY MOUTH TWICE DAILY X 5-10 DAYS) TO TREAT THE INFECTIONS (ON AVERAGE TWICE PER YEAR
     Dates: start: 20110501, end: 20110501
  3. LEVOTHYROXINE SODIUM [Concomitant]
  4. MULTIVITAMIN (VIGRAN) [Concomitant]
  5. CALCIUM CARBONATE [Concomitant]
  6. VITAMIN D [Concomitant]

REACTIONS (4)
  - ARTHROPATHY [None]
  - SIMILAR REACTION ON PREVIOUS EXPOSURE TO DRUG [None]
  - ACTIVITIES OF DAILY LIVING IMPAIRED [None]
  - TENDONITIS [None]
